FAERS Safety Report 17501113 (Version 1)
Quarter: 2020Q1

REPORT INFORMATION
  Report Type: Spontaneous
  Country: JP (occurrence: JP)
  Receive Date: 20200305
  Receipt Date: 20200305
  Transmission Date: 20200409
  Serious: Yes (Hospitalization)
  Sender: FDA-Public Use
  Company Number: JP-FRESENIUS KABI-FK202002244

PATIENT
  Age: 80 Year
  Sex: Female

DRUGS (1)
  1. DIPYRIDAMOLE (MANUFACTURER UNKNOWN) [Suspect]
     Active Substance: DIPYRIDAMOLE
     Indication: ANGINA PECTORIS
     Dosage: UNKNOWN
     Route: 065

REACTIONS (1)
  - Oesophageal haemorrhage [Recovered/Resolved]
